FAERS Safety Report 5515459-6 (Version None)
Quarter: 2007Q4

REPORT INFORMATION
  Report Type: 
  Country: None (occurrence: None)
  Receive Date: 20071113
  Receipt Date: 20070222
  Transmission Date: 20080405
  Serious: No
  Sender: FDA-Public Use
  Company Number: A0640574A

PATIENT
  Sex: Male

DRUGS (5)
  1. COREG [Suspect]
     Indication: HYPERTENSION
     Dosage: 25MG TWICE PER DAY
     Route: 048
  2. AMERICAINE [Concomitant]
  3. NIASPAN [Concomitant]
  4. ENALAPRIL MALEATE [Concomitant]
  5. VITAMINS [Concomitant]

REACTIONS (2)
  - APATHY [None]
  - FATIGUE [None]
